FAERS Safety Report 18996977 (Version 1)
Quarter: 2021Q1

REPORT INFORMATION
  Report Type: Spontaneous
  Country: US (occurrence: US)
  Receive Date: 20210310
  Receipt Date: 20210310
  Transmission Date: 20210420
  Serious: Yes (Hospitalization)
  Sender: FDA-Public Use
  Company Number: None

PATIENT

DRUGS (1)
  1. REBLOZYL [Suspect]
     Active Substance: LUSPATERCEPT-AAMT
     Dosage: ?          OTHER FREQUENCY:EVERY21DAYS ;?
     Route: 058
     Dates: start: 20200331

REACTIONS (2)
  - Peripheral swelling [None]
  - Full blood count decreased [None]
